FAERS Safety Report 17153254 (Version 1)
Quarter: 2019Q4

REPORT INFORMATION
  Report Type: Report from Study
  Country: US (occurrence: US)
  Receive Date: 20191213
  Receipt Date: 20191213
  Transmission Date: 20200122
  Serious: Yes (Other)
  Sender: FDA-Public Use
  Company Number: US-SHIRE-US201942665

PATIENT
  Age: 85 Year
  Sex: Female
  Weight: 53.97 kg

DRUGS (5)
  1. AVAPRO [Concomitant]
     Active Substance: IRBESARTAN
     Indication: HYPERTENSION
     Dosage: 300 MILLIGRAM, 1X/DAY:QD
  2. CARBATROL [Suspect]
     Active Substance: CARBAMAZEPINE
     Indication: SEIZURE
     Dosage: 400 MILLIGRAM, 1X/DAY:QD
     Route: 048
     Dates: start: 2009
  3. CARBATROL [Suspect]
     Active Substance: CARBAMAZEPINE
     Indication: HYDROCEPHALUS
     Dosage: 300 MILLIGRAM, 1X/DAY:QD
     Route: 048
     Dates: start: 2009
  4. ACTOS [Concomitant]
     Active Substance: PIOGLITAZONE HYDROCHLORIDE
     Indication: DIABETES MELLITUS
     Dosage: 30 MILLIGRAM, 1X/DAY:QD
  5. LIPITOR [Concomitant]
     Active Substance: ATORVASTATIN CALCIUM
     Indication: BLOOD CHOLESTEROL
     Dosage: 20 MILLIGRAM, 1X/DAY:QD

REACTIONS (8)
  - Fall [Not Recovered/Not Resolved]
  - Facial pain [Recovered/Resolved]
  - Loss of consciousness [Not Recovered/Not Resolved]
  - Swelling [Recovering/Resolving]
  - Tooth loss [Recovered/Resolved]
  - Cervical vertebral fracture [Recovered/Resolved]
  - Contusion [Not Recovered/Not Resolved]
  - Intentional product use issue [Not Recovered/Not Resolved]

NARRATIVE: CASE EVENT DATE: 2009
